FAERS Safety Report 7640784-2 (Version None)
Quarter: 2011Q3

REPORT INFORMATION
  Report Type: 
  Country: None (occurrence: None)
  Receive Date: 20110727
  Receipt Date: 20110727
  Transmission Date: 20111222
  Serious: Yes (Hospitalization)
  Sender: FDA-Public Use
  Company Number: None

PATIENT
  Sex: Female
  Weight: 57.1532 kg

DRUGS (17)
  1. DETROL [Concomitant]
  2. IBUPROFEN [Concomitant]
  3. ACUVAIL [Concomitant]
  4. LISINOPRIL [Concomitant]
  5. RANIBIZUMAB [Suspect]
     Indication: MACULAR DEGENERATION
     Dosage: 0.05 PRN IVT
     Route: 042
     Dates: start: 20110422
  6. RANIBIZUMAB [Suspect]
     Indication: MACULAR DEGENERATION
     Dosage: 0.05 PRN IVT
     Route: 042
     Dates: start: 20101228
  7. RANIBIZUMAB [Suspect]
     Indication: MACULAR DEGENERATION
     Dosage: 0.05 PRN IVT
     Route: 042
     Dates: start: 20101123
  8. RANIBIZUMAB [Suspect]
     Indication: MACULAR DEGENERATION
     Dosage: 0.05 PRN IVT
     Route: 042
     Dates: start: 20110125
  9. RANIBIZUMAB [Suspect]
     Indication: MACULAR DEGENERATION
     Dosage: 0.05 PRN IVT
     Route: 042
     Dates: start: 20110225
  10. RANIBIZUMAB [Suspect]
     Indication: MACULAR DEGENERATION
     Dosage: 0.05 PRN IVT
     Route: 042
     Dates: start: 20110325
  11. RANIBIZUMAB [Suspect]
     Indication: MACULAR DEGENERATION
     Dosage: 0.05 PRN IVT
     Route: 042
     Dates: start: 20110527
  12. RANIBIZUMAB [Suspect]
     Indication: MACULAR DEGENERATION
     Dosage: 0.05 PRN IVT
     Route: 042
     Dates: start: 20110628
  13. DUREZOL [Concomitant]
  14. PREDNISONE [Concomitant]
  15. RANIBIZUMAB [Suspect]
  16. AZASITE [Concomitant]
  17. POLYMYXIN [Concomitant]

REACTIONS (1)
  - DRUG HYPERSENSITIVITY [None]
